FAERS Safety Report 5904370-4 (Version None)
Quarter: 2008Q4

REPORT INFORMATION
  Report Type: 
  Country: None (occurrence: None)
  Receive Date: 20081001
  Receipt Date: 20080924
  Transmission Date: 20090506
  Serious: Yes (Hospitalization)
  Sender: FDA-Public Use
  Company Number: PHBS2008TR05828

PATIENT
  Age: 33 Year
  Sex: Female

DRUGS (3)
  1. CARBAMAZEPINE [Suspect]
     Indication: SCIATICA
     Dosage: 200 MG, QD
  2. CARBAMAZEPINE [Suspect]
     Dosage: UNK
  3. METHOTREXATE [Suspect]
     Indication: RHEUMATOID ARTHRITIS
     Dosage: 7.5 MG, QD

REACTIONS (7)
  - ARTHRALGIA [None]
  - BLOOD CREATININE INCREASED [None]
  - FOLATE DEFICIENCY [None]
  - PANCYTOPENIA [None]
  - PYREXIA [None]
  - RED BLOOD CELL SEDIMENTATION RATE INCREASED [None]
  - RHEUMATOID FACTOR INCREASED [None]
